FAERS Safety Report 11181135 (Version 1)
Quarter: 2015Q2

REPORT INFORMATION
  Report Type: Spontaneous
  Country: US (occurrence: None)
  Receive Date: 20150610
  Receipt Date: 20150610
  Transmission Date: 20150821
  Serious: Yes (Congenital Anomaly)
  Sender: FDA-Public Use
  Company Number: None

PATIENT
  Age: 30 Year
  Sex: Female
  Weight: 63.05 kg

DRUGS (2)
  1. NATURE-THROID [Concomitant]
     Active Substance: THYROID, PORCINE
  2. BRETHINE [Suspect]
     Active Substance: TERBUTALINE SULFATE
     Indication: UTERINE CONTRACTIONS ABNORMAL
     Dates: start: 20140604, end: 20140611

REACTIONS (3)
  - Cataract congenital [None]
  - Maternal exposure during delivery [None]
  - Maternal drugs affecting foetus [None]

NARRATIVE: CASE EVENT DATE: 20140828
